FAERS Safety Report 8182295-4 (Version None)
Quarter: 2012Q1

REPORT INFORMATION
  Report Type: 
  Country: None (occurrence: None)
  Receive Date: 20120302
  Receipt Date: 20120228
  Transmission Date: 20120608
  Serious: Yes (Death)
  Sender: FDA-Public Use
  Company Number: PHHY2012MX017612

PATIENT
  Age: 78 Year
  Sex: Female

DRUGS (2)
  1. CALCORT [Concomitant]
     Indication: PULMONARY FIBROSIS
     Dosage: 0.5 DF (UNK), UNK
     Dates: start: 20111101
  2. DIOVAN [Suspect]
     Indication: HYPERTENSION
     Dosage: 2 DF (80 MG), DAILY
     Dates: start: 20111001, end: 20111101

REACTIONS (1)
  - CARDIAC ARREST [None]
